FAERS Safety Report 9471830 (Version 2)
Quarter: 2013Q3

REPORT INFORMATION
  Report Type: Report from Study
  Country: CA (occurrence: CA)
  Receive Date: 20130822
  Receipt Date: 20130904
  Transmission Date: 20140515
  Serious: Yes (Hospitalization, Other)
  Sender: FDA-Public Use
  Company Number: CA-ROCHE-1264178

PATIENT
  Age: 61 Year
  Sex: Female
  Weight: 86.2 kg

DRUGS (10)
  1. RITUXAN [Suspect]
     Indication: RHEUMATOID ARTHRITIS
     Dosage: DAY 1, 15
     Route: 042
     Dates: start: 20110627
  2. IMURAN [Concomitant]
     Route: 065
  3. ACTONEL [Concomitant]
     Route: 065
  4. PLAQUENIL [Concomitant]
     Route: 065
  5. LORAZEPAM [Concomitant]
     Dosage: AT NIGHT
     Route: 065
  6. MORPHINE [Concomitant]
     Route: 065
  7. FISH OIL [Concomitant]
     Route: 065
  8. DIPHENHYDRAMINE HCL [Concomitant]
     Indication: PREMEDICATION
     Route: 048
     Dates: start: 20110627
  9. ACETAMINOPHEN [Concomitant]
     Indication: PREMEDICATION
     Route: 048
     Dates: start: 20110627
  10. METHYLPREDNISOLONE [Concomitant]
     Indication: PREMEDICATION
     Route: 042
     Dates: start: 20110627

REACTIONS (2)
  - Ovarian cancer [Not Recovered/Not Resolved]
  - Abdominal operation [Unknown]
